FAERS Safety Report 5600720-7 (Version None)
Quarter: 2008Q1

REPORT INFORMATION
  Report Type: 
  Country: None (occurrence: None)
  Receive Date: 20080123
  Receipt Date: 20080111
  Transmission Date: 20080703
  Serious: Yes (Other)
  Sender: FDA-Public Use
  Company Number: CN-PFIZER INC-2007108974

PATIENT
  Age: 19 Year
  Sex: Male

DRUGS (5)
  1. ZOLOFT [Suspect]
     Indication: COMPULSIONS
     Route: 048
     Dates: start: 20070521, end: 20070917
  2. BENZODIAZEPINE DERIVATIVES [Concomitant]
     Indication: COMPULSIONS
     Route: 048
  3. SULPIRIDE [Concomitant]
     Indication: COMPULSIONS
     Route: 048
     Dates: start: 20070521, end: 20070917
  4. CLONAZEPAM [Concomitant]
     Route: 048
     Dates: start: 20070521, end: 20070917
  5. VALPROATE SODIUM [Concomitant]
     Route: 048
     Dates: start: 20070521, end: 20070917

REACTIONS (1)
  - BLOOD CREATINE PHOSPHOKINASE INCREASED [None]
